FAERS Safety Report 24126232 (Version 1)
Quarter: 2024Q3

REPORT INFORMATION
  Report Type: Spontaneous
  Country: US (occurrence: US)
  Receive Date: 20240723
  Receipt Date: 20240723
  Transmission Date: 20241016
  Serious: No
  Sender: MERCK
  Company Number: US-009507513-2407USA008323

PATIENT
  Age: 42 Year
  Sex: Male

DRUGS (1)
  1. TEMODAR [Suspect]
     Active Substance: TEMOZOLOMIDE
     Indication: Ependymoma
     Dosage: DOSAGE OF 75 MG/M2 DURING RADIATION FOR 42 DAYS
     Route: 048
     Dates: start: 20080911, end: 20081027

REACTIONS (1)
  - Off label use [Unknown]

NARRATIVE: CASE EVENT DATE: 20080911
